FAERS Safety Report 4508613-3 (Version None)
Quarter: 2004Q4

REPORT INFORMATION
  Report Type: 
  Country: None (occurrence: None)
  Receive Date: 20041123
  Receipt Date: 20040428
  Transmission Date: 20050328
  Serious: No
  Sender: FDA-Public Use
  Company Number: US-GLAXOSMITHKLINE-A0508786A

PATIENT
  Age: 52 Year
  Sex: Female

DRUGS (5)
  1. WELLBUTRIN [Suspect]
     Indication: DEPRESSION
     Dosage: 150MG UNKNOWN
     Route: 048
     Dates: start: 20020607
  2. BOTOX [Suspect]
  3. PRIMIDONE [Concomitant]
  4. DIAZEPAM [Concomitant]
  5. OXYCODONE HCL [Concomitant]

REACTIONS (1)
  - MUSCULAR WEAKNESS [None]
